FAERS Safety Report 24728175 (Version 1)
Quarter: 2024Q4

REPORT INFORMATION
  Report Type: Other
  Country: SE (occurrence: SE)
  Receive Date: 20241212
  Receipt Date: 20241212
  Transmission Date: 20250114
  Serious: Yes (Other)
  Sender: DUCHESNAY
  Company Number: None

PATIENT

DRUGS (1)
  1. DOXYLAMINE SUCCINATE\PYRIDOXINE HYDROCHLORIDE [Suspect]
     Active Substance: DOXYLAMINE SUCCINATE\PYRIDOXINE HYDROCHLORIDE
     Indication: Morning sickness
     Dosage: 2 TABLETS EVERY EVENING AND 1 TABLET IN THE MORNING
     Route: 048
     Dates: start: 20241029, end: 20241203

REACTIONS (1)
  - Abortion missed [Unknown]

NARRATIVE: CASE EVENT DATE: 20241203
